FAERS Safety Report 8246357-5 (Version None)
Quarter: 2012Q1

REPORT INFORMATION
  Report Type: 
  Country: None (occurrence: None)
  Receive Date: 20120330
  Receipt Date: 20120322
  Transmission Date: 20120608
  Serious: Yes (Other)
  Sender: FDA-Public Use
  Company Number: US-ABBOTT-12P-163-0918108-00

PATIENT
  Sex: Female

DRUGS (1)
  1. HUMIRA [Suspect]
     Indication: RHEUMATOID ARTHRITIS
     Route: 058
     Dates: start: 20110701, end: 20120301

REACTIONS (3)
  - PULMONARY FIBROSIS [None]
  - INTERSTITIAL LUNG DISEASE [None]
  - CHRONIC OBSTRUCTIVE PULMONARY DISEASE [None]
